FAERS Safety Report 7308581-5 (Version None)
Quarter: 2011Q1

REPORT INFORMATION
  Report Type: 
  Country: None (occurrence: None)
  Receive Date: 20110223
  Receipt Date: 20101129
  Transmission Date: 20110831
  Serious: Yes (Other)
  Sender: FDA-Public Use
  Company Number: US-BAYER-2010-007424

PATIENT
  Sex: Female

DRUGS (2)
  1. YAZ [Suspect]
     Dosage: UNK
     Dates: start: 20101001
  2. PLAN B [Concomitant]

REACTIONS (4)
  - PREGNANCY [None]
  - VAGINAL HAEMORRHAGE [None]
  - HYPOMENORRHOEA [None]
  - VOMITING [None]
